FAERS Safety Report 5034247-0 (Version None)
Quarter: 2006Q2

REPORT INFORMATION
  Report Type: 
  Country: None (occurrence: None)
  Receive Date: 20060621
  Receipt Date: 20060606
  Transmission Date: 20061013
  Serious: Yes (Hospitalization, Other)
  Sender: FDA-Public Use
  Company Number: 14174

PATIENT
  Age: 45 Year
  Sex: Female
  Weight: 75.2971 kg

DRUGS (2)
  1. PACLITAXEL [Suspect]
     Indication: BREAST CANCER
     Dosage: 312 FORTNIGHTLY IV
     Route: 042
     Dates: start: 20050811, end: 20050825
  2. PACLITAXEL [Suspect]
     Indication: BREAST CANCER
     Dosage: 250 FORTNIGHTLY IV
     Route: 042
     Dates: start: 20050825, end: 20050908

REACTIONS (2)
  - NEUROPATHY [None]
  - PULMONARY TOXICITY [None]
